FAERS Safety Report 15802140 (Version 2)
Quarter: 2019Q1

REPORT INFORMATION
  Report Type: Report from Study
  Country: CO (occurrence: CO)
  Receive Date: 20190109
  Receipt Date: 20190124
  Transmission Date: 20190417
  Serious: Yes (Hospitalization)
  Sender: FDA-Public Use
  Company Number: PHHY2019CO002937

PATIENT
  Sex: Male

DRUGS (1)
  1. ENTRESTO [Suspect]
     Active Substance: SACUBITRIL\VALSARTAN
     Indication: CARDIAC FAILURE
     Dosage: 200 MG, Q12H
     Route: 048
     Dates: start: 20180924, end: 20181214

REACTIONS (7)
  - Dizziness [Not Recovered/Not Resolved]
  - Malaise [Unknown]
  - Eating disorder [Unknown]
  - Decreased appetite [Not Recovered/Not Resolved]
  - Mood altered [Not Recovered/Not Resolved]
  - Weight decreased [Unknown]
  - Insomnia [Unknown]
